FAERS Safety Report 11643680 (Version 1)
Quarter: 2015Q4

REPORT INFORMATION
  Report Type: Spontaneous
  Country: DE (occurrence: DE)
  Receive Date: 20151020
  Receipt Date: 20151020
  Transmission Date: 20160304
  Serious: Yes (Other)
  Sender: FDA-Public Use
  Company Number: DE-PFIZER INC-2015342413

PATIENT
  Sex: Male

DRUGS (5)
  1. ZOLOFT [Suspect]
     Active Substance: SERTRALINE HYDROCHLORIDE
     Indication: BORDERLINE PERSONALITY DISORDER
     Dosage: UNK (0. - 39 GESTATIONAL WEEK)
     Route: 064
  2. RAMIPRIL. [Concomitant]
     Active Substance: RAMIPRIL
     Indication: HYPERTENSION
     Dosage: 0. - 7. GESTATIONAL WEEK
     Route: 064
  3. VALPROAT [Concomitant]
     Active Substance: VALPROATE SODIUM
     Indication: BORDERLINE PERSONALITY DISORDER
     Dosage: UNK, DAILY
     Route: 064
     Dates: start: 20140729, end: 20140829
  4. FOLIO FORTE [Concomitant]
     Active Substance: FOLIC ACID\VITAMINS
     Indication: PROPHYLAXIS OF NEURAL TUBE DEFECT
     Dosage: 0.8 MG/ (TO 5), 4.2. - 39.1. GESTATIONAL WEEK
     Route: 064
     Dates: start: 20140828, end: 20150429
  5. METHYLDOPA. [Concomitant]
     Active Substance: METHYLDOPA
     Indication: HYPERTENSION
     Dosage: 7. - 39.1. GESTATIONAL WEEK
     Route: 064

REACTIONS (8)
  - Feeling jittery [Recovered/Resolved]
  - Maternal exposure during pregnancy [Recovered/Resolved]
  - Small for dates baby [Recovered/Resolved]
  - Oxygen saturation decreased [Recovered/Resolved]
  - Agitation neonatal [Recovered/Resolved]
  - Low birth weight baby [Recovered/Resolved]
  - Foetal growth restriction [Recovered/Resolved]
  - Respiratory disorder neonatal [Recovered/Resolved]

NARRATIVE: CASE EVENT DATE: 20150429
